FAERS Safety Report 11239759 (Version 4)
Quarter: 2016Q1

REPORT INFORMATION
  Report Type: Report from Study
  Country: CA (occurrence: CA)
  Receive Date: 20150706
  Receipt Date: 20160323
  Transmission Date: 20160525
  Serious: No
  Sender: FDA-Public Use
  Company Number: PHHY2015CA080905

PATIENT
  Sex: Female

DRUGS (1)
  1. TASIGNA [Suspect]
     Active Substance: NILOTINIB
     Indication: CHRONIC MYELOID LEUKAEMIA
     Dosage: 300 MG, BID
     Route: 048
     Dates: start: 20150512

REACTIONS (18)
  - Oropharyngeal pain [Unknown]
  - Alopecia [Unknown]
  - Pruritus [Unknown]
  - Skin hypertrophy [Unknown]
  - Dry skin [Unknown]
  - Urinary tract infection [Unknown]
  - Skin disorder [Unknown]
  - Rash papular [Unknown]
  - Vaginal discharge [Unknown]
  - Pain [Unknown]
  - Impaired healing [Unknown]
  - Uterine disorder [Unknown]
  - Nasopharyngitis [Unknown]
  - Vaginal infection [Unknown]
  - Acne [Unknown]
  - Discomfort [Unknown]
  - Diabetes mellitus [Unknown]
  - Constipation [Unknown]
